FAERS Safety Report 17826331 (Version 2)
Quarter: 2020Q2

REPORT INFORMATION
  Report Type: Report from Study
  Country: ES (occurrence: ES)
  Receive Date: 20200527
  Receipt Date: 20200531
  Transmission Date: 20200714
  Serious: Yes (Hospitalization, Other)
  Sender: FDA-Public Use
  Company Number: ES-BRISTOL-MYERS SQUIBB COMPANY-BMS-2020-034179

PATIENT
  Age: 79 Year
  Sex: Male
  Weight: 68 kg

DRUGS (29)
  1. DEXAMETHASONE. [Concomitant]
     Active Substance: DEXAMETHASONE
     Indication: PRODUCT USED FOR UNKNOWN INDICATION
     Dosage: 12 MILLIGRAM, QD
     Route: 048
  2. SODIUM BICARBONATE. [Concomitant]
     Active Substance: SODIUM BICARBONATE
     Indication: PROPHYLAXIS
     Dosage: 250 ABSENT, QD
     Route: 042
     Dates: start: 20200420, end: 20200422
  3. COLESTIRAMINA [Concomitant]
     Active Substance: CHOLESTYRAMINE
     Indication: DYSLIPIDAEMIA
     Dosage: 50 MILLIGRAM, TID
     Dates: start: 20200504, end: 20200513
  4. OMEPRAZOL [OMEPRAZOLE] [Concomitant]
     Active Substance: OMEPRAZOLE
     Indication: PRODUCT USED FOR UNKNOWN INDICATION
     Dosage: 40 MILLIGRAM, QD
     Route: 042
     Dates: start: 20200428, end: 20200513
  5. PARACETAMOL [Concomitant]
     Active Substance: ACETAMINOPHEN
     Indication: PROPHYLAXIS
     Dosage: 100 MILLIGRAM, QD
     Route: 042
     Dates: start: 20200402
  6. ENOXAPARINA [Concomitant]
     Active Substance: ENOXAPARIN
     Indication: PRODUCT USED FOR UNKNOWN INDICATION
     Dosage: 40 MILLIGRAM, QD
     Route: 042
     Dates: start: 20200420, end: 20200426
  7. PIPERACILLIN AND TAZOBACTAM [Concomitant]
     Active Substance: PIPERACILLIN SODIUM\TAZOBACTAM SODIUM
     Indication: ANTIBIOTIC THERAPY
     Dosage: 4000 MILLIGRAM, TID
     Route: 042
     Dates: start: 20200421, end: 20200513
  8. MIRTAZAPINE. [Concomitant]
     Active Substance: MIRTAZAPINE
     Indication: DEPRESSION
     Dosage: 15 MILLIGRAM, QD
     Route: 048
     Dates: start: 20200506, end: 20200506
  9. OMEPRAZOL [OMEPRAZOLE] [Concomitant]
     Active Substance: OMEPRAZOLE
     Indication: PROPHYLAXIS
     Dosage: 20 MILLIGRAM, QD
     Route: 048
     Dates: start: 20121127
  10. IPRATROPIO [Concomitant]
     Active Substance: IPRATROPIUM BROMIDE
     Indication: ASTHMA
     Dosage: 40 MICROGRAM
     Route: 065
     Dates: start: 20200309
  11. ONDANSETRON [Concomitant]
     Active Substance: ONDANSETRON
     Indication: NAUSEA
     Dosage: 8 MILLIGRAM, BID
     Route: 042
     Dates: start: 20200429, end: 20200513
  12. CEFTRIAXONE. [Concomitant]
     Active Substance: CEFTRIAXONE
     Indication: ANTIBIOTIC THERAPY
     Dosage: 2000 MILLIGRAM, QD
     Route: 042
     Dates: start: 20200419, end: 20200422
  13. LEVOMEPROMAZINE [Concomitant]
     Active Substance: LEVOMEPROMAZINE
     Indication: ANTIBIOTIC THERAPY
     Dosage: 25 MILLIGRAM, QD
     Route: 058
     Dates: start: 20200512, end: 20200513
  14. LAURYLSULFURIC ACID SODIUM [Concomitant]
     Indication: PRODUCT USED FOR UNKNOWN INDICATION
     Dosage: 1 DOSAGE FORM, QD
     Route: 054
     Dates: start: 20200429, end: 20200513
  15. ALMAGATO [Concomitant]
     Active Substance: ALMAGATE
     Indication: NAUSEA
     Dosage: 1 DOSAGE FORM = 1 ENVELOPE
     Route: 048
     Dates: start: 20200504, end: 20200513
  16. OMEPRAZOL [OMEPRAZOLE] [Concomitant]
     Active Substance: OMEPRAZOLE
     Indication: PRODUCT USED FOR UNKNOWN INDICATION
     Dosage: 40 MILLIGRAM, QD
     Route: 048
     Dates: start: 20200419, end: 20200428
  17. DEXAMETHASONE. [Concomitant]
     Active Substance: DEXAMETHASONE
     Indication: PROPHYLAXIS
     Dosage: 40 MILLIGRAM, QD
     Route: 048
     Dates: start: 20200402
  18. ALPRAZOLAM. [Concomitant]
     Active Substance: ALPRAZOLAM
     Indication: DEPRESSION
     Dosage: 250 MICROGRAM, TID
     Route: 060
     Dates: start: 20200506, end: 20200513
  19. COLECALCIFEROL [Concomitant]
     Active Substance: CHOLECALCIFEROL
     Indication: PROPHYLAXIS
     Dosage: 1 ABSENT, QD
     Route: 048
     Dates: start: 20200121
  20. METOCLOPRAMIDA [METOCLOPRAMIDE] [Concomitant]
     Active Substance: METOCLOPRAMIDE
     Indication: PAIN
     Dosage: 10 MILLIGRAM, BID
     Route: 042
     Dates: start: 20200420, end: 20200513
  21. MORPHINE [Concomitant]
     Active Substance: MORPHINE
     Indication: PAIN
     Dosage: 5 MILLIGRAM, QID
     Route: 058
     Dates: start: 20200506, end: 20200506
  22. IPILIMUMAB [Suspect]
     Active Substance: IPILIMUMAB
     Indication: PROSTATE CANCER
     Dosage: 180 MILLIGRAM
     Route: 042
     Dates: start: 20200130, end: 20200513
  23. ZOLEDRONIC ACID [Concomitant]
     Active Substance: ZOLEDRONIC ACID
     Indication: METASTASES TO BONE
     Dosage: 4 MILLIGRAM, QD
     Route: 042
     Dates: start: 20200402, end: 20200402
  24. ONDANSETRON [Concomitant]
     Active Substance: ONDANSETRON
     Indication: PROPHYLAXIS
     Dosage: 8 MILLIGRAM, QD
     Route: 042
     Dates: start: 20200402
  25. LINEZOLID. [Concomitant]
     Active Substance: LINEZOLID
     Indication: ANTIBIOTIC THERAPY
     Dosage: 600 MILLIGRAM, BID
     Route: 042
     Dates: start: 20200424, end: 20200506
  26. CLORPROMAZINA [CHLORPROMAZINE] [Concomitant]
     Active Substance: CHLORPROMAZINE
     Indication: ANTIBIOTIC THERAPY
     Dosage: 25 MILLIGRAM, QD
     Route: 042
     Dates: start: 20200430, end: 20200512
  27. METAMIZOL [Concomitant]
     Active Substance: METAMIZOLE SODIUM
     Indication: PAIN
     Dosage: 575 MILLIGRAM, BID
     Route: 048
     Dates: start: 20160308
  28. ENOXAPARINA [Concomitant]
     Active Substance: ENOXAPARIN
     Indication: PROPHYLAXIS
     Dosage: 60 MILLIGRAM, QD
     Route: 058
     Dates: start: 20200419, end: 20200419
  29. FENTAL [FENTANYL] [Concomitant]
     Indication: PAIN
     Dosage: 24 MICROGRAM, 72 HR
     Route: 062
     Dates: start: 20200423, end: 20200513

REACTIONS (3)
  - Meningioma [Unknown]
  - Cyclic vomiting syndrome [Recovering/Resolving]
  - Pneumonia [Recovered/Resolved]

NARRATIVE: CASE EVENT DATE: 20200419
